FAERS Safety Report 7748189-0 (Version None)
Quarter: 2011Q3

REPORT INFORMATION
  Report Type: 
  Country: None (occurrence: None)
  Receive Date: 20110913
  Receipt Date: 20110901
  Transmission Date: 20111222
  Serious: Yes (Hospitalization)
  Sender: FDA-Public Use
  Company Number: US-NOVOPROD-332939

PATIENT
  Sex: Male
  Weight: 88.435 kg

DRUGS (3)
  1. TESTOSTERONE [Concomitant]
     Indication: FATIGUE
     Dosage: EVERY 2 WEEKS
  2. WELLBUTRIN XL [Concomitant]
     Indication: SMOKING CESSATION THERAPY
  3. LIRAGLUTIDE FLEXPEN [Suspect]
     Dosage: 1.8 MG, QD
     Route: 058
     Dates: start: 20110401

REACTIONS (1)
  - OEDEMA PERIPHERAL [None]
